FAERS Safety Report 6251410-1 (Version None)
Quarter: 2009Q2

REPORT INFORMATION
  Report Type: 
  Country: None (occurrence: None)
  Receive Date: 20090630
  Receipt Date: 20090623
  Transmission Date: 20091009
  Serious: Yes (Other)
  Sender: FDA-Public Use
  Company Number: CA-ROCHE-640003

PATIENT
  Sex: Female

DRUGS (5)
  1. CELLCEPT [Suspect]
     Indication: LUPUS NEPHRITIS
     Route: 048
     Dates: start: 20090425
  2. CELLCEPT [Suspect]
     Route: 048
  3. CELLCEPT [Suspect]
     Route: 048
  4. COUMADIN [Concomitant]
     Indication: TRANSVERSE SINUS THROMBOSIS
     Dosage: OTHER INDICATION: ANTICARDIOLIPIN ANTIBODY POSITIVE, THERAPY DURATION: FOR MANY YEARS.
  5. PREDNISONE TAB [Concomitant]
     Indication: LUPUS NEPHRITIS
     Dosage: DRUG: PRENISONE

REACTIONS (1)
  - INTERNATIONAL NORMALISED RATIO INCREASED [None]
